FAERS Safety Report 24726796 (Version 1)
Quarter: 2024Q4

REPORT INFORMATION
  Report Type: Spontaneous
  Country: US (occurrence: None)
  Receive Date: 20241211
  Receipt Date: 20241211
  Transmission Date: 20250114
  Serious: Yes (Other)
  Sender: Public
  Company Number: None

PATIENT
  Age: 62 Year
  Sex: Male

DRUGS (1)
  1. LENALIDOMIDE [Suspect]
     Active Substance: LENALIDOMIDE
     Indication: Plasma cell leukaemia
     Dosage: FREQUENCY : DAILY;?
     Route: 048
     Dates: start: 202412

REACTIONS (1)
  - Circumstance or information capable of leading to medication error [None]

NARRATIVE: CASE EVENT DATE: 20241211
